FAERS Safety Report 15847045 (Version 1)
Quarter: 2019Q1

REPORT INFORMATION
  Report Type: Spontaneous
  Country: ES (occurrence: ES)
  Receive Date: 20190121
  Receipt Date: 20190121
  Transmission Date: 20190417
  Serious: Yes (Other)
  Sender: FDA-Public Use
  Company Number: ES-AUROBINDO-AUR-APL-2019-000982

PATIENT
  Age: 64 Year
  Sex: Female

DRUGS (2)
  1. AMOXICILINA                        /00249603/ [Suspect]
     Active Substance: AMOXICILLIN SODIUM
     Indication: PNEUMONIA
     Dosage: 1 GRAM, 8 HOUR
     Route: 048
     Dates: start: 20181106, end: 20181109
  2. PARACETAMOL [Suspect]
     Active Substance: ACETAMINOPHEN
     Indication: PYREXIA
     Dosage: 1 GRAM, 8 HOUR
     Route: 048
     Dates: start: 20181106, end: 20181109

REACTIONS (1)
  - Mixed liver injury [Recovering/Resolving]

NARRATIVE: CASE EVENT DATE: 20181110
